FAERS Safety Report 15130094 (Version 1)
Quarter: 2018Q3

REPORT INFORMATION
  Report Type: Report from Study
  Country: ES (occurrence: ES)
  Receive Date: 20180711
  Receipt Date: 20180711
  Transmission Date: 20181010
  Serious: Yes (Death, Life-Threatening, Hospitalization)
  Sender: FDA-Public Use
  Company Number: ES-ROCHE-2147731

PATIENT
  Age: 82 Year
  Sex: Female

DRUGS (3)
  1. ATORVASTATINA [Concomitant]
     Active Substance: ATORVASTATIN
     Indication: PRODUCT USED FOR UNKNOWN INDICATION
     Route: 048
     Dates: start: 20170918
  2. ENOXAPARINA [Suspect]
     Active Substance: ENOXAPARIN
     Indication: CEREBROVASCULAR ACCIDENT
     Route: 058
     Dates: start: 20170918, end: 20170922
  3. ALTEPLASE. [Suspect]
     Active Substance: ALTEPLASE
     Indication: CEREBROVASCULAR ACCIDENT
     Dosage: 5,4 MG + 48,6 MG MG PER DAY (55 MG,1 D)
     Route: 042
     Dates: start: 20170918, end: 20170918

REACTIONS (3)
  - Shock haemorrhagic [Recovered/Resolved with Sequelae]
  - Peripheral artery haematoma [Recovered/Resolved]
  - Cardio-respiratory arrest [Fatal]

NARRATIVE: CASE EVENT DATE: 20170919
